FAERS Safety Report 6387615-9 (Version None)
Quarter: 2009Q4

REPORT INFORMATION
  Report Type: 
  Country: None (occurrence: None)
  Receive Date: 20091005
  Receipt Date: 20090925
  Transmission Date: 20100525
  Serious: No
  Sender: FDA-Public Use
  Company Number: US-JNJFOC-20090908239

PATIENT
  Sex: Female
  Weight: 65.77 kg

DRUGS (5)
  1. FENTANYL TRANSDERMAL SYSTEM [Suspect]
     Route: 062
     Dates: start: 20090101
  2. FENTANYL TRANSDERMAL SYSTEM [Suspect]
     Indication: HEADACHE
     Route: 062
     Dates: start: 20090101
  3. LORCET-HD [Concomitant]
     Indication: HEADACHE
     Dosage: AS NEEDED
     Route: 048
  4. VALIUM [Concomitant]
     Indication: NEUROPATHY PERIPHERAL
     Route: 048
  5. LEXAPRO [Concomitant]
     Indication: NEUROPATHY PERIPHERAL
     Route: 048

REACTIONS (6)
  - APPLICATION SITE VESICLES [None]
  - DRUG INEFFECTIVE [None]
  - ERYTHEMA [None]
  - HEADACHE [None]
  - PRODUCT ADHESION ISSUE [None]
  - WRONG TECHNIQUE IN DRUG USAGE PROCESS [None]
